FAERS Safety Report 8618301-X (Version None)
Quarter: 2012Q3

REPORT INFORMATION
  Report Type: 
  Country: None (occurrence: None)
  Receive Date: 20120824
  Receipt Date: 20120817
  Transmission Date: 20120928
  Serious: Yes (Hospitalization)
  Sender: FDA-Public Use
  Company Number: US-BIOGENIDEC-2012BI032011

PATIENT
  Age: 65 Year
  Sex: Female

DRUGS (1)
  1. AVONEX [Suspect]
     Indication: MULTIPLE SCLEROSIS
     Route: 030
     Dates: start: 20010822

REACTIONS (7)
  - INJECTION SITE HAEMATOMA [None]
  - ARTHRITIS [None]
  - SPEECH DISORDER [None]
  - APHASIA [None]
  - FATIGUE [None]
  - CEREBROVASCULAR ACCIDENT [None]
  - INJECTION SITE PAIN [None]
